FAERS Safety Report 6078571-1 (Version None)
Quarter: 2009Q1

REPORT INFORMATION
  Report Type: 
  Country: None (occurrence: None)
  Receive Date: 20090212
  Receipt Date: 20090130
  Transmission Date: 20090719
  Serious: Yes (Other)
  Sender: FDA-Public Use
  Company Number: 2008AL011185

PATIENT
  Age: 53 Year
  Sex: Male

DRUGS (4)
  1. MIRTAZAPINE [Suspect]
     Indication: DEPRESSION
     Dosage: 15 MG; QD; PO
     Route: 048
     Dates: start: 20070201
  2. ALCOHOL [Concomitant]
  3. ESCITALOPRAM [Concomitant]
  4. DOTHIEPIN HYDROCHLORIDE [Concomitant]

REACTIONS (6)
  - ALCOHOL USE [None]
  - DRUG EFFECT DECREASED [None]
  - INSOMNIA [None]
  - LEGAL PROBLEM [None]
  - NIGHTMARE [None]
  - OEDEMA PERIPHERAL [None]
